FAERS Safety Report 25768551 (Version 1)
Quarter: 2025Q3

REPORT INFORMATION
  Report Type: Spontaneous
  Country: US (occurrence: US)
  Receive Date: 20250905
  Receipt Date: 20250905
  Transmission Date: 20251021
  Serious: Yes (Other)
  Sender: DR REDDYS
  Company Number: None

PATIENT
  Age: 82 Year
  Sex: Male

DRUGS (2)
  1. TACROLIMUS [Suspect]
     Active Substance: TACROLIMUS
     Indication: Immunosuppressant drug therapy
  2. OXYGEN [Concomitant]
     Active Substance: OXYGEN
     Indication: Respiratory failure

REACTIONS (4)
  - Malacoplakia [Unknown]
  - Scrotal infection [Unknown]
  - Escherichia infection [Unknown]
  - Malassezia infection [Unknown]
